FAERS Safety Report 23697398 (Version 1)
Quarter: 2024Q2

REPORT INFORMATION
  Report Type: Spontaneous
  Country: US (occurrence: None)
  Receive Date: 20240401
  Receipt Date: 20240401
  Transmission Date: 20240717
  Serious: Yes (Hospitalization)
  Sender: FDA-Public Use
  Company Number: None

PATIENT
  Age: 58 Year
  Sex: Female

DRUGS (1)
  1. LENALIDOMIDE [Suspect]
     Active Substance: LENALIDOMIDE
     Indication: Plasma cell myeloma
     Dosage: 10MG DAILY X   ORAL
     Route: 048
     Dates: start: 20220420

REACTIONS (2)
  - Basal ganglia infarction [None]
  - Cerebral infarction [None]

NARRATIVE: CASE EVENT DATE: 20240315
